FAERS Safety Report 16306250 (Version 3)
Quarter: 2020Q4

REPORT INFORMATION
  Report Type: Spontaneous
  Country: US (occurrence: US)
  Receive Date: 20190513
  Receipt Date: 20201204
  Transmission Date: 20210113
  Serious: Yes (Death, Other)
  Sender: FDA-Public Use
  Company Number: US-ASTRAZENECA-2019SE66405

PATIENT
  Age: 27205 Day
  Sex: Female

DRUGS (44)
  1. FUROSEMIDE. [Concomitant]
     Active Substance: FUROSEMIDE
     Indication: DRUG ABUSE
     Dates: start: 201310, end: 201705
  2. RENVELA [Concomitant]
     Active Substance: SEVELAMER CARBONATE
     Indication: KIDNEY MALFORMATION
     Dates: start: 201503, end: 201705
  3. TYLENOL [Concomitant]
     Active Substance: ACETAMINOPHEN
  4. LASIX [Concomitant]
     Active Substance: FUROSEMIDE
  5. AMOXICILLIN. [Concomitant]
     Active Substance: AMOXICILLIN
  6. OMEPRAZOLE. [Suspect]
     Active Substance: OMEPRAZOLE
     Indication: GASTROOESOPHAGEAL REFLUX DISEASE
     Route: 048
     Dates: start: 20160412
  7. VITAMIN B12 [Concomitant]
     Active Substance: CYANOCOBALAMIN
  8. ONDANSETRON [Concomitant]
     Active Substance: ONDANSETRON
  9. CALCITRIOL. [Concomitant]
     Active Substance: CALCITRIOL
  10. ALLOPURINOL. [Concomitant]
     Active Substance: ALLOPURINOL
  11. WARFARIN [Concomitant]
     Active Substance: WARFARIN
  12. GABAPENTIN. [Concomitant]
     Active Substance: GABAPENTIN
  13. ACETAMINOPHEN-CODEINE [Concomitant]
     Active Substance: ACETAMINOPHEN\CODEINE PHOSPHATE
     Indication: ANALGESIC THERAPY
     Dates: start: 201208, end: 201401
  14. ASPIRIN. [Concomitant]
     Active Substance: ASPIRIN
     Indication: ANALGESIC THERAPY
     Dates: start: 201408, end: 201705
  15. CALCIUM CARBONATE. [Concomitant]
     Active Substance: CALCIUM CARBONATE
  16. CHOLECALCIFEROL [Concomitant]
     Active Substance: CHOLECALCIFEROL
  17. COMBIVENT [Concomitant]
     Active Substance: ALBUTEROL SULFATE\IPRATROPIUM BROMIDE
  18. OXYTROL [Concomitant]
     Active Substance: OXYBUTYNIN
  19. PRILOSEC OTC [Suspect]
     Active Substance: OMEPRAZOLE MAGNESIUM
     Indication: GASTROOESOPHAGEAL REFLUX DISEASE
     Route: 048
     Dates: start: 2010, end: 2017
  20. ADVAIR HFA [Concomitant]
     Active Substance: FLUTICASONE PROPIONATE\SALMETEROL XINAFOATE
  21. NITROFURANTOIN. [Concomitant]
     Active Substance: NITROFURANTOIN
  22. FOSAMAX [Concomitant]
     Active Substance: ALENDRONATE SODIUM
  23. OMEPRAZOLE. [Suspect]
     Active Substance: OMEPRAZOLE
     Indication: GASTROOESOPHAGEAL REFLUX DISEASE
     Dosage: GENERIC
     Route: 065
     Dates: start: 20140521, end: 20160412
  24. CARVEDILOL. [Concomitant]
     Active Substance: CARVEDILOL
     Indication: HYPERTENSION
     Dates: start: 201409, end: 201705
  25. HYDRALAZINE [Concomitant]
     Active Substance: HYDRALAZINE HYDROCHLORIDE
     Indication: HYPERTENSION
     Dates: start: 201501, end: 201705
  26. NORVASC [Concomitant]
     Active Substance: AMLODIPINE BESYLATE
  27. LIDOCAINE-PRILOCAINE [Concomitant]
     Active Substance: LIDOCAINE\PRILOCAINE
  28. OXYCODONE [Concomitant]
     Active Substance: OXYCODONE
  29. TEGRETOL [Concomitant]
     Active Substance: CARBAMAZEPINE
  30. BONIVA [Concomitant]
     Active Substance: IBANDRONATE SODIUM
  31. AZITHROMYCIN ANHYDROUS. [Concomitant]
     Active Substance: AZITHROMYCIN ANHYDROUS
  32. ALENDRONATE [Concomitant]
     Active Substance: ALENDRONATE SODIUM
  33. OMEPRAZOLE. [Suspect]
     Active Substance: OMEPRAZOLE
     Indication: GASTROOESOPHAGEAL REFLUX DISEASE
     Route: 048
     Dates: start: 20160107
  34. OMEPRAZOLE. [Suspect]
     Active Substance: OMEPRAZOLE
     Indication: GASTROOESOPHAGEAL REFLUX DISEASE
     Route: 048
     Dates: start: 20160209
  35. OMEPRAZOLE. [Suspect]
     Active Substance: OMEPRAZOLE
     Indication: GASTROOESOPHAGEAL REFLUX DISEASE
     Route: 048
     Dates: start: 20160308
  36. LISINOPRIL- HYDROCHLOROTHIAZIDE [Concomitant]
     Indication: HYPERTENSION
     Dates: start: 200512, end: 201312
  37. AMLODIPINE BESYLATE. [Concomitant]
     Active Substance: AMLODIPINE BESYLATE
     Indication: HYPERTENSION
     Dates: start: 201401, end: 201705
  38. PSYLLIUM [Concomitant]
     Active Substance: PLANTAGO SEED
  39. IBUPROFEN. [Concomitant]
     Active Substance: IBUPROFEN
  40. HYDROCODONE-ACETAMINOPHEN [Concomitant]
     Active Substance: ACETAMINOPHEN\HYDROCODONE
     Indication: ANALGESIC THERAPY
     Dates: start: 201210, end: 201701
  41. CARVEDILOL. [Concomitant]
     Active Substance: CARVEDILOL
     Indication: CARDIAC FAILURE
     Dates: start: 201409, end: 201705
  42. OXYCODONE [Concomitant]
     Active Substance: OXYCODONE
     Indication: ANALGESIC THERAPY
     Dates: start: 201509, end: 201603
  43. MOXIFLOXACIN. [Concomitant]
     Active Substance: MOXIFLOXACIN
  44. LYRICA [Concomitant]
     Active Substance: PREGABALIN

REACTIONS (6)
  - Death [Fatal]
  - End stage renal disease [Not Recovered/Not Resolved]
  - Chronic kidney disease-mineral and bone disorder [Unknown]
  - Chronic kidney disease [Not Recovered/Not Resolved]
  - Renal failure [Unknown]
  - Nephrogenic anaemia [Unknown]

NARRATIVE: CASE EVENT DATE: 20130311
